FAERS Safety Report 6140321-8 (Version None)
Quarter: 2009Q2

REPORT INFORMATION
  Report Type: 
  Country: None (occurrence: None)
  Receive Date: 20090401
  Receipt Date: 20090320
  Transmission Date: 20091009
  Serious: Yes (Disabling)
  Sender: FDA-Public Use
  Company Number: GB-ELI_LILLY_AND_COMPANY-GB200903005099

PATIENT
  Age: 26 Year
  Sex: Male

DRUGS (1)
  1. FLUOXETINE [Suspect]
     Route: 048

REACTIONS (1)
  - COUGH [None]
